FAERS Safety Report 8054558-4 (Version None)
Quarter: 2012Q1

REPORT INFORMATION
  Report Type: 
  Country: None (occurrence: None)
  Receive Date: 20120119
  Receipt Date: 20120106
  Transmission Date: 20120608
  Serious: Yes (Death, Hospitalization)
  Sender: FDA-Public Use
  Company Number: US-BIOGENIDEC-2012BI000743

PATIENT
  Age: 58 Year
  Sex: Male

DRUGS (21)
  1. ACETAMINOPHEN [Concomitant]
     Route: 048
  2. BENADRYL [Concomitant]
     Route: 048
  3. BACLOFEN [Concomitant]
     Route: 048
  4. LISINOPRIL [Concomitant]
     Route: 048
  5. SIMVASTATIN [Concomitant]
     Route: 048
  6. WELLBUTRIN XL [Concomitant]
     Route: 048
  7. TYSABRI [Suspect]
     Indication: MULTIPLE SCLEROSIS
     Route: 042
     Dates: start: 20080616, end: 20111212
  8. NORCO [Concomitant]
     Route: 048
  9. OMEPRAZOLE [Concomitant]
     Route: 048
  10. VITAMIN D [Concomitant]
     Route: 048
  11. BENADRYL [Concomitant]
     Route: 042
     Dates: start: 20110916, end: 20110916
  12. DETROL LA [Concomitant]
     Route: 048
  13. CALCIUM CARBONATE WITH VITAMIN D [Concomitant]
     Route: 048
  14. COUMADIN [Concomitant]
     Route: 048
  15. MECLIZINE [Concomitant]
     Route: 048
  16. CALCIUM CARBONATE WITH VITAMIN D [Concomitant]
     Route: 048
  17. COUMADIN [Concomitant]
     Route: 048
  18. NEURONTIN [Concomitant]
     Route: 048
  19. NORCO [Concomitant]
     Route: 048
  20. OXYBUTYNIN [Concomitant]
     Route: 048
  21. ZOLOFT [Concomitant]
     Route: 048

REACTIONS (20)
  - PULMONARY EMBOLISM [None]
  - OXYGEN SATURATION DECREASED [None]
  - BLOOD CALCIUM DECREASED [None]
  - BLOOD LACTIC ACID INCREASED [None]
  - SEPSIS [None]
  - HAEMORRHAGE INTRACRANIAL [None]
  - UPPER RESPIRATORY TRACT INFECTION [None]
  - CARBON DIOXIDE DECREASED [None]
  - RENAL FAILURE ACUTE [None]
  - ALANINE AMINOTRANSFERASE INCREASED [None]
  - ASPARTATE AMINOTRANSFERASE INCREASED [None]
  - SINUS TACHYCARDIA [None]
  - BLOOD GLUCOSE INCREASED [None]
  - METABOLIC ACIDOSIS [None]
  - HAEMATOCRIT DECREASED [None]
  - ASCITES [None]
  - NEPHROLITHIASIS [None]
  - CEREBELLAR HAEMORRHAGE [None]
  - INTERNATIONAL NORMALISED RATIO INCREASED [None]
  - HAEMOGLOBIN DECREASED [None]
